FAERS Safety Report 6903331-6 (Version None)
Quarter: 2010Q3

REPORT INFORMATION
  Report Type: 
  Country: None (occurrence: None)
  Receive Date: 20100803
  Receipt Date: 20080915
  Transmission Date: 20110219
  Serious: No
  Sender: FDA-Public Use
  Company Number: US-PFIZER INC-2008078091

PATIENT
  Sex: Female
  Weight: 61.4 kg

DRUGS (2)
  1. LYRICA [Suspect]
     Indication: NEURALGIA
     Dates: start: 20080101
  2. ACTONEL [Concomitant]

REACTIONS (2)
  - ALOPECIA [None]
  - WEIGHT INCREASED [None]
